FAERS Safety Report 6678141-8 (Version None)
Quarter: 2010Q2

REPORT INFORMATION
  Report Type: 
  Country: None (occurrence: None)
  Receive Date: 20100409
  Receipt Date: 20100409
  Transmission Date: 20101027
  Serious: Yes (Other)
  Sender: FDA-Public Use
  Company Number: None

PATIENT

DRUGS (2)
  1. XOLAIR [Suspect]
  2. XOLAIR [Concomitant]

REACTIONS (2)
  - BREAST CANCER FEMALE [None]
  - LYMPHOMA [None]
